FAERS Safety Report 4616142-1 (Version None)
Quarter: 2005Q1

REPORT INFORMATION
  Report Type: 
  Country: None (occurrence: None)
  Receive Date: 20050323
  Receipt Date: 20050308
  Transmission Date: 20050727
  Serious: Yes (Hospitalization, Other)
  Sender: FDA-Public Use
  Company Number: JP-JNJFOC-20050101615

PATIENT
  Sex: Male

DRUGS (4)
  1. RISPERDAL [Suspect]
     Route: 065
  2. RISPERDAL [Suspect]
     Indication: SCHIZOPHRENIA
     Route: 065
  3. CLONAZEPAM [Concomitant]
     Indication: SCHIZOPHRENIA
  4. ETIZOLAM [Concomitant]
     Indication: SCHIZOPHRENIA

REACTIONS (7)
  - ATRIOVENTRICULAR BLOCK COMPLETE [None]
  - DEPRESSED LEVEL OF CONSCIOUSNESS [None]
  - PNEUMONIA [None]
  - RESPIRATORY FAILURE [None]
  - SICK SINUS SYNDROME [None]
  - SINUS ARREST [None]
  - TRANSIENT ISCHAEMIC ATTACK [None]
